FAERS Safety Report 16378977 (Version 1)
Quarter: 2019Q2

REPORT INFORMATION
  Report Type: Report from Study
  Country: US (occurrence: US)
  Receive Date: 20190531
  Receipt Date: 20190531
  Transmission Date: 20190711
  Serious: Yes (Death)
  Sender: FDA-Public Use
  Company Number: US-EXELIXIS-CABO-19021281

PATIENT
  Age: 56 Year
  Sex: Male
  Weight: 80.27 kg

DRUGS (10)
  1. ADVIL [Concomitant]
     Active Substance: IBUPROFEN
  2. PREDNISONE. [Concomitant]
     Active Substance: PREDNISONE
  3. BENZONATATE. [Concomitant]
     Active Substance: BENZONATATE
  4. CABOMETYX [Suspect]
     Active Substance: CABOZANTINIB S-MALATE
     Indication: RENAL CELL CARCINOMA
     Dosage: 40 MG, QD
     Route: 048
     Dates: start: 20190422
  5. COLACE [Concomitant]
     Active Substance: DOCUSATE SODIUM
  6. HYDROMORPHONE HCL [Concomitant]
     Active Substance: HYDROMORPHONE HYDROCHLORIDE
  7. MIRALAX [Concomitant]
     Active Substance: POLYETHYLENE GLYCOL 3350
  8. ATORVASTATIN CALCIUM. [Concomitant]
     Active Substance: ATORVASTATIN CALCIUM
  9. TYLENOL [Concomitant]
     Active Substance: ACETAMINOPHEN
  10. ONDANSETRON HCL [Concomitant]
     Active Substance: ONDANSETRON HYDROCHLORIDE

REACTIONS (3)
  - Vomiting [Unknown]
  - Diarrhoea [Recovered/Resolved]
  - Accident [Fatal]

NARRATIVE: CASE EVENT DATE: 201904
